FAERS Safety Report 16107733 (Version 2)
Quarter: 2019Q1

REPORT INFORMATION
  Report Type: Spontaneous
  Country: FR (occurrence: FR)
  Receive Date: 20190322
  Receipt Date: 20190322
  Transmission Date: 20190418
  Serious: Yes (Death)
  Sender: FDA-Public Use
  Company Number: PHHY2019FR062268

PATIENT
  Age: 62 Year
  Sex: Male
  Weight: 105 kg

DRUGS (9)
  1. ONDANSETRON [Suspect]
     Active Substance: ONDANSETRON
     Indication: NAUSEA
     Dosage: 1 DF, QD
     Route: 042
     Dates: start: 20181222, end: 20181228
  2. PANTOPRAZOLE SODIUM. [Suspect]
     Active Substance: PANTOPRAZOLE SODIUM
     Indication: PROPHYLAXIS
     Dosage: 1 DF, QD
     Route: 042
  3. BACTRIM [Suspect]
     Active Substance: SULFAMETHOXAZOLE\TRIMETHOPRIM
     Indication: SEPSIS
     Dosage: 1 DF, QD
     Route: 048
     Dates: start: 20181222, end: 20190104
  4. ZYVOXID [Suspect]
     Active Substance: LINEZOLID
     Indication: SEPSIS
     Route: 042
  5. VALACICLOVIR [Suspect]
     Active Substance: VALACYCLOVIR HYDROCHLORIDE
     Indication: INFECTION PROPHYLAXIS
     Dosage: 1 DF, QD
     Route: 048
     Dates: end: 20190122
  6. AMBISOME [Suspect]
     Active Substance: AMPHOTERICIN B
     Indication: CANDIDA INFECTION
     Route: 042
  7. NORADRENALINE [Suspect]
     Active Substance: NOREPINEPHRINE
     Indication: HAEMODYNAMIC INSTABILITY
     Route: 042
  8. IMIPENEM CILASTATINE MYLAN [Suspect]
     Active Substance: IMIPENEM
     Indication: SEPSIS
     Dosage: 1 DF, Q8H
     Route: 042
     Dates: start: 20181221, end: 20190108
  9. CORDARONE [Suspect]
     Active Substance: AMIODARONE HYDROCHLORIDE
     Indication: ARRHYTHMIA
     Dosage: 300 MG, UNK
     Route: 042
     Dates: start: 20181222, end: 20181222

REACTIONS (1)
  - Hepatitis cholestatic [Fatal]

NARRATIVE: CASE EVENT DATE: 20181228
